FAERS Safety Report 9805286 (Version 1)
Quarter: 2014Q1

REPORT INFORMATION
  Report Type: Report from Study
  Country: US (occurrence: US)
  Receive Date: 20140109
  Receipt Date: 20140109
  Transmission Date: 20141002
  Serious: Yes (Death)
  Sender: FDA-Public Use
  Company Number: US-ROCHE-1324276

PATIENT
  Sex: Female

DRUGS (3)
  1. AVASTIN [Suspect]
     Indication: BREAST CANCER FEMALE
     Dosage: WITH NORMAL SALINE
     Route: 042
     Dates: start: 20110922, end: 20111019
  2. NORMAL SALINE [Concomitant]
  3. CAMPTOSAR [Concomitant]

REACTIONS (2)
  - Disease progression [Fatal]
  - Urinary retention [Unknown]
